FAERS Safety Report 4748079-1 (Version None)
Quarter: 2005Q3

REPORT INFORMATION
  Report Type: 
  Country: None (occurrence: None)
  Receive Date: 20050818
  Receipt Date: 20050815
  Transmission Date: 20060218
  Serious: Yes (Hospitalization)
  Sender: FDA-Public Use
  Company Number: JP-GLAXOSMITHKLINE-B0390774A

PATIENT
  Age: 72 Year
  Sex: Male
  Weight: 64 kg

DRUGS (8)
  1. VALTREX [Suspect]
     Indication: HERPES ZOSTER
     Dosage: 1000MG PER DAY
     Route: 048
     Dates: start: 20050812, end: 20050814
  2. ADALAT [Concomitant]
     Route: 048
  3. AMLODIN [Concomitant]
     Route: 048
  4. BLOPRESS [Concomitant]
     Route: 048
  5. SELOKEN [Concomitant]
     Route: 048
  6. UNKNOWN DRUG [Concomitant]
     Route: 065
  7. ALDOMET [Concomitant]
     Route: 048
  8. VERAPAMIL [Concomitant]
     Route: 065

REACTIONS (2)
  - DELIRIUM [None]
  - DIFFICULTY IN WALKING [None]
